FAERS Safety Report 17126135 (Version 1)
Quarter: 2019Q4

REPORT INFORMATION
  Report Type: Spontaneous
  Country: DE (occurrence: DE)
  Receive Date: 20191209
  Receipt Date: 20191209
  Transmission Date: 20200122
  Serious: Yes (Hospitalization, Disabling)
  Sender: FDA-Public Use
  Company Number: DE-009507513-1912DEU001091

PATIENT
  Age: 51 Year
  Sex: Male
  Weight: 69.5 kg

DRUGS (1)
  1. KEYTRUDA [Suspect]
     Active Substance: PEMBROLIZUMAB
     Indication: OESOPHAGEAL ADENOCARCINOMA
     Dosage: DAILY DOSE: 200 MG MILLGRAM (S), EVERY 3 WEEKS
     Route: 042
     Dates: start: 20190727

REACTIONS (2)
  - Thoracic vertebral fracture [Unknown]
  - Epilepsy [Unknown]

NARRATIVE: CASE EVENT DATE: 20191027
